FAERS Safety Report 10009385 (Version 2)
Quarter: 2014Q1

REPORT INFORMATION
  Report Type: Spontaneous
  Country: US (occurrence: US)
  Receive Date: 20140313
  Receipt Date: 20140313
  Transmission Date: 20141002
  Serious: No
  Sender: FDA-Public Use
  Company Number: US-INCYTE CORPORATION-2012IN001185

PATIENT
  Age: 75 Year
  Sex: Male
  Weight: 69.39 kg

DRUGS (4)
  1. JAKAFI [Suspect]
     Indication: MYELOFIBROSIS
     Dosage: 20 MG, BID
     Route: 048
     Dates: start: 20120605, end: 20120702
  2. JAKAFI [Suspect]
     Dosage: NOT SPECIFIED, (DOSE DECREASED)
     Route: 048
     Dates: start: 20120703
  3. SYNTHROID [Concomitant]
  4. LASIX [Concomitant]

REACTIONS (2)
  - Asthenia [Recovering/Resolving]
  - Fatigue [Recovering/Resolving]
